FAERS Safety Report 18943805 (Version 4)
Quarter: 2022Q1

REPORT INFORMATION
  Report Type: Report from Study
  Country: US (occurrence: None)
  Receive Date: 20210226
  Receipt Date: 20220121
  Transmission Date: 20220423
  Serious: No
  Sender: FDA-Public Use
  Company Number: US-MERCK HEALTHCARE KGAA-9221145

PATIENT
  Age: 56 Year
  Sex: Female
  Weight: 58 kg

DRUGS (2)
  1. REBIF [Suspect]
     Active Substance: INTERFERON BETA-1A
     Indication: Multiple sclerosis
     Dosage: PREFILLED SYRINGE
     Route: 058
     Dates: start: 20100525
  2. REBIF [Suspect]
     Active Substance: INTERFERON BETA-1A
     Dosage: PREFILLED SYRINGE?PREVIOUSLY: REBIJECT II
     Route: 058
     Dates: start: 2018

REACTIONS (8)
  - Balance disorder [Unknown]
  - Tooth injury [Not Recovered/Not Resolved]
  - Tremor [Unknown]
  - Stress [Unknown]
  - Insomnia [Unknown]
  - Feeding disorder [Unknown]
  - Bladder disorder [Unknown]
  - Tooth loss [Not Recovered/Not Resolved]

NARRATIVE: CASE EVENT DATE: 20110101
